FAERS Safety Report 8239357-2 (Version None)
Quarter: 2012Q1

REPORT INFORMATION
  Report Type: 
  Country: None (occurrence: None)
  Receive Date: 20120326
  Receipt Date: 20120313
  Transmission Date: 20120608
  Serious: Yes (Hospitalization)
  Sender: FDA-Public Use
  Company Number: 2012MA003549

PATIENT
  Age: 81 Year
  Sex: Female

DRUGS (6)
  1. ASPIRIN [Concomitant]
  2. LEVOTHYROXINE SODIUM [Concomitant]
  3. SIMVASTATIN [Concomitant]
  4. GLICLAZIDE [Concomitant]
  5. METFORMIN HCL [Concomitant]
  6. DONEPEZIL HYDRCHLORIDE [Suspect]
     Indication: PRODUCT USED FOR UNKNOWN INDICATION
     Dosage: 5 MG;HS;PO
     Route: 048

REACTIONS (3)
  - BRADYCARDIA [None]
  - SYNCOPE [None]
  - UNRESPONSIVE TO STIMULI [None]
